FAERS Safety Report 12631405 (Version 2)
Quarter: 2016Q3

REPORT INFORMATION
  Report Type: Spontaneous
  Country: US (occurrence: US)
  Receive Date: 20160808
  Receipt Date: 20160808
  Transmission Date: 20161109
  Serious: No
  Sender: FDA-Public Use
  Company Number: US-BEH-2015053759

PATIENT
  Sex: Female

DRUGS (11)
  1. ALLEGRA [Concomitant]
     Active Substance: FEXOFENADINE HYDROCHLORIDE
  2. LMX [Concomitant]
     Active Substance: LIDOCAINE
  3. LIDOCAINE / PRILOCAINE [Concomitant]
  4. DEPO-PROVERA [Concomitant]
     Active Substance: MEDROXYPROGESTERONE ACETATE
  5. ZAFIRLUKAST. [Concomitant]
     Active Substance: ZAFIRLUKAST
  6. EPIPEN [Concomitant]
     Active Substance: EPINEPHRINE
  7. DYMISTA [Concomitant]
     Active Substance: AZELASTINE HYDROCHLORIDE\FLUTICASONE PROPIONATE
  8. ACETAMINOPHEN. [Concomitant]
     Active Substance: ACETAMINOPHEN
  9. HIZENTRA [Suspect]
     Active Substance: HUMAN IMMUNOGLOBULIN G
     Indication: IMMUNODEFICIENCY COMMON VARIABLE
     Route: 058
  10. DIPHENHYDRAMINE. [Concomitant]
     Active Substance: DIPHENHYDRAMINE
  11. KEFLEX [Concomitant]
     Active Substance: CEPHALEXIN

REACTIONS (3)
  - Migraine [Unknown]
  - Administration site swelling [Unknown]
  - Administration site joint erythema [Unknown]
